FAERS Safety Report 26153146 (Version 1)
Quarter: 2025Q4

REPORT INFORMATION
  Report Type: Spontaneous
  Country: GB (occurrence: GB)
  Receive Date: 20251214
  Receipt Date: 20251214
  Transmission Date: 20260119
  Serious: Yes (Life-Threatening, Hospitalization, Other)
  Sender: TEVA
  Company Number: None

PATIENT
  Age: 23 Year
  Sex: Female
  Weight: 70 kg

DRUGS (3)
  1. URSODIOL [Suspect]
     Active Substance: URSODIOL
     Indication: Cholestasis of pregnancy
     Route: 048
     Dates: start: 20160115, end: 20160306
  2. RIFAMPIN [Suspect]
     Active Substance: RIFAMPIN
     Indication: Cholestasis of pregnancy
     Dosage: (STARTED AROUND 27 WEEKS GESTATION)
     Route: 048
     Dates: start: 20160215, end: 20160306
  3. VITAMIN K [Concomitant]
     Active Substance: PHYTONADIONE
     Indication: Product used for unknown indication
     Dosage: UNK

REACTIONS (5)
  - Nephrolithiasis [Recovered/Resolved]
  - Sepsis [Recovered/Resolved]
  - Maternal exposure during pregnancy [Unknown]
  - Ureteric obstruction [Recovered/Resolved]
  - Malaise [Recovered/Resolved]

NARRATIVE: CASE EVENT DATE: 20160306
